FAERS Safety Report 16918473 (Version 1)
Quarter: 2019Q4

REPORT INFORMATION
  Report Type: Spontaneous
  Country: FR (occurrence: FR)
  Receive Date: 20191015
  Receipt Date: 20191015
  Transmission Date: 20200122
  Serious: Yes (Hospitalization, Other)
  Sender: FDA-Public Use
  Company Number: FR-PFIZER INC-2019435779

PATIENT
  Age: 2 Year
  Sex: Male
  Weight: 12 kg

DRUGS (4)
  1. CISPLATINE MYLAN [Suspect]
     Active Substance: CISPLATIN
     Indication: NEUROBLASTOMA
     Dosage: 80 MG/M2, CYCLIC
     Route: 042
     Dates: start: 20190128, end: 20190314
  2. ETOPOSIDE MYLAN [Suspect]
     Active Substance: ETOPOSIDE
     Indication: NEUROBLASTOMA
     Dosage: 175 MG/M2, CYCLIC
     Route: 042
     Dates: start: 20190118, end: 20190326
  3. ENDOXAN [CYCLOPHOSPHAMIDE] [Suspect]
     Active Substance: CYCLOPHOSPHAMIDE
     Indication: NEUROBLASTOMA
     Dosage: 1050 MG/M2, CYCLIC
     Route: 042
     Dates: start: 20190207, end: 20190326
  4. VINCRISTINE HOSPIRA [Suspect]
     Active Substance: VINCRISTINE
     Indication: NEUROBLASTOMA
     Dosage: 1.5 MG/M2, CYCLIC
     Route: 042
     Dates: start: 20190118, end: 20190325

REACTIONS (1)
  - Thrombotic microangiopathy [Recovered/Resolved]

NARRATIVE: CASE EVENT DATE: 20190327
